FAERS Safety Report 25039530 (Version 1)
Quarter: 2025Q1

REPORT INFORMATION
  Report Type: Spontaneous
  Country: US (occurrence: US)
  Receive Date: 20250305
  Receipt Date: 20250305
  Transmission Date: 20250409
  Serious: No
  Sender: TARO
  Company Number: US-TARO PHARMACEUTICALS USA INC.-2024TAR00151

PATIENT

DRUGS (1)
  1. MICONAZOLE NITRATE [Suspect]
     Active Substance: MICONAZOLE NITRATE
     Indication: Fungal infection
     Dosage: 1 APPLICATORFUL, OD, AT BEDTIME
     Route: 067
     Dates: start: 20240127, end: 20240129

REACTIONS (1)
  - Vaginal haemorrhage [Recovering/Resolving]

NARRATIVE: CASE EVENT DATE: 20240130
